FAERS Safety Report 7577178-4 (Version None)
Quarter: 2011Q2

REPORT INFORMATION
  Report Type: 
  Country: None (occurrence: None)
  Receive Date: 20110628
  Receipt Date: 20110610
  Transmission Date: 20111010
  Serious: Yes (Hospitalization)
  Sender: FDA-Public Use
  Company Number: US-BAYER-201030777NA

PATIENT
  Age: 30 Year
  Sex: Female
  Weight: 117.91 kg

DRUGS (6)
  1. PROTON PUMP INHIBITORS [Concomitant]
     Dosage: UNK
     Route: 042
     Dates: start: 20080501
  2. YASMIN [Suspect]
     Indication: CONTRACEPTION
     Route: 048
     Dates: start: 20061001, end: 20070901
  3. PROTON PUMP INHIBITORS [Concomitant]
     Dosage: UNK
     Route: 048
     Dates: start: 20080501
  4. YASMIN [Suspect]
     Indication: ACNE
  5. YASMIN [Suspect]
     Indication: PREMENSTRUAL SYNDROME
  6. ZOLOFT [Concomitant]
     Indication: DEPRESSION

REACTIONS (5)
  - CHOLELITHIASIS [None]
  - CHOLECYSTITIS CHRONIC [None]
  - PANCREATITIS [None]
  - PULMONARY EMBOLISM [None]
  - GALLBLADDER DISORDER [None]
